FAERS Safety Report 9301236 (Version 2)
Quarter: 2013Q3

REPORT INFORMATION
  Report Type: Report from Study
  Country: None (occurrence: US)
  Receive Date: 20130521
  Receipt Date: 20130703
  Transmission Date: 20140515
  Serious: Yes (Hospitalization)
  Sender: FDA-Public Use
  Company Number: US-ABBOTT-13P-163-1090083-00

PATIENT
  Sex: Male

DRUGS (5)
  1. HUMIRA [Suspect]
     Indication: PRODUCT USED FOR UNKNOWN INDICATION
     Route: 058
     Dates: start: 20130320, end: 20130320
  2. HUMIRA [Suspect]
  3. HUMIRA [Suspect]
     Dates: end: 201304
  4. HUMIRA [Suspect]
  5. METHOTREXATE [Suspect]
     Indication: PRODUCT USED FOR UNKNOWN INDICATION
     Dosage: WITH HUMIRA INJECTIONS

REACTIONS (1)
  - Immunodeficiency [Recovered/Resolved]
